FAERS Safety Report 9121135 (Version 2)
Quarter: 2013Q3

REPORT INFORMATION
  Report Type: Spontaneous
  Country: US (occurrence: US)
  Receive Date: 20130226
  Receipt Date: 20130716
  Transmission Date: 20140515
  Serious: Yes (Death)
  Sender: FDA-Public Use
  Company Number: US-ASTRAZENECA-2013SE11474

PATIENT
  Age: 8 Month
  Sex: Male

DRUGS (3)
  1. SYNAGIS [Suspect]
     Dosage: 50 MG/0.5 ML, 15 MG/KG ONCE A MONTH
     Route: 030
     Dates: start: 20130108
  2. MORPHINE [Concomitant]
  3. RANITIDINE [Concomitant]

REACTIONS (1)
  - Spinal muscular atrophy [Fatal]
